FAERS Safety Report 6282114-7 (Version None)
Quarter: 2009Q3

REPORT INFORMATION
  Report Type: 
  Country: None (occurrence: None)
  Receive Date: 20090724
  Receipt Date: 20090302
  Transmission Date: 20100115
  Serious: No
  Sender: FDA-Public Use
  Company Number: US-KINGPHARMUSA00001-K200900210

PATIENT
  Sex: Female

DRUGS (1)
  1. SEPTRA [Suspect]

REACTIONS (1)
  - DRUG HYPERSENSITIVITY [None]
